FAERS Safety Report 23204661 (Version 1)
Quarter: 2023Q4

REPORT INFORMATION
  Report Type: Report from Study
  Country: GB (occurrence: GB)
  Receive Date: 20231120
  Receipt Date: 20231120
  Transmission Date: 20240110
  Serious: Yes (Hospitalization)
  Sender: FDA-Public Use
  Company Number: GB-002147023-NVSC2023GB122469

PATIENT
  Age: 36 Year
  Sex: Female
  Weight: 89.6 kg

DRUGS (19)
  1. SECUKINUMAB [Suspect]
     Active Substance: SECUKINUMAB
     Indication: Hidradenitis
     Dosage: 300 MG, Q2W
     Route: 058
     Dates: start: 20200804
  2. UNSPECIFIED INGREDIENT [Suspect]
     Active Substance: UNSPECIFIED INGREDIENT
     Indication: Hidradenitis
     Dosage: NO TREATMENT
     Route: 065
  3. ACETAMINOPHEN [Concomitant]
     Active Substance: ACETAMINOPHEN
     Indication: Arthralgia
     Dosage: UNK
     Route: 065
  4. FLUCLOXACILLIN [Concomitant]
     Active Substance: FLUCLOXACILLIN
     Indication: Skin infection
     Dosage: UNK
     Route: 065
     Dates: start: 20201122
  5. FLUCLOXACILLIN [Concomitant]
     Active Substance: FLUCLOXACILLIN
     Dosage: UNK
     Route: 065
     Dates: start: 20220809
  6. GABAPENTIN [Concomitant]
     Active Substance: GABAPENTIN
     Indication: Neuralgia
     Dosage: UNK
     Route: 065
     Dates: start: 20210118
  7. DIAZEPAM [Concomitant]
     Active Substance: DIAZEPAM
     Indication: Stress
     Dosage: UNK
     Route: 065
     Dates: start: 20220427
  8. METRONIDAZOLE [Concomitant]
     Active Substance: METRONIDAZOLE
     Indication: Bacterial vaginosis
     Dosage: UNK
     Route: 065
     Dates: start: 20220809
  9. METRONIDAZOLE [Concomitant]
     Active Substance: METRONIDAZOLE
     Dosage: GEL
     Route: 065
     Dates: start: 20230729
  10. ZOPICLONE [Concomitant]
     Active Substance: ZOPICLONE
     Indication: Insomnia
     Dosage: UNK
     Route: 065
     Dates: start: 20230608
  11. METHOTREXATE [Concomitant]
     Active Substance: METHOTREXATE
     Indication: Bacterial vaginosis
     Dosage: UNK
     Route: 065
     Dates: start: 20230615
  12. CHLORAMPHENICOL [Concomitant]
     Active Substance: CHLORAMPHENICOL
     Indication: Eye infection
     Dosage: UNK
     Route: 065
     Dates: start: 20230621, end: 20230623
  13. PENICILLIN [Concomitant]
     Active Substance: PENICILLIN
     Indication: Sinusitis
     Dosage: UNK
     Route: 065
     Dates: start: 20230719, end: 20230724
  14. AMOXICILLIN\CLAVULANATE POTASSIUM [Concomitant]
     Active Substance: AMOXICILLIN\CLAVULANATE POTASSIUM
     Indication: Sinusitis
     Dosage: UNK
     Route: 065
     Dates: start: 20230725, end: 20230731
  15. CARBOMER [Concomitant]
     Active Substance: CARBOMER
     Indication: Eye irritation
     Dosage: UNK
     Route: 065
     Dates: start: 20230729
  16. DIBUCAINE HYDROCHLORIDE\PREDNISOLONE [Concomitant]
     Active Substance: DIBUCAINE HYDROCHLORIDE\PREDNISOLONE
     Indication: Haemorrhoids
     Dosage: UNK
     Route: 065
     Dates: start: 20230729
  17. CROMOLYN SODIUM [Concomitant]
     Active Substance: CROMOLYN SODIUM
     Indication: Eye irritation
     Dosage: UNK
     Route: 065
     Dates: start: 20230729
  18. AZITHROMYCIN [Concomitant]
     Active Substance: AZITHROMYCIN
     Indication: Blepharitis
     Dosage: UNK
     Route: 065
     Dates: start: 20230829, end: 20230829
  19. AZITHROMYCIN [Concomitant]
     Active Substance: AZITHROMYCIN
     Dosage: UNK
     Route: 065
     Dates: start: 20230830, end: 20230905

REACTIONS (2)
  - Urinary tract infection [Recovered/Resolved]
  - Abscess [Recovered/Resolved]

NARRATIVE: CASE EVENT DATE: 20230524
